FAERS Safety Report 24287888 (Version 1)
Quarter: 2024Q3

REPORT INFORMATION
  Report Type: Spontaneous
  Country: IN (occurrence: IN)
  Receive Date: 20240905
  Receipt Date: 20240905
  Transmission Date: 20241016
  Serious: Yes (Hospitalization)
  Sender: MYLAN
  Company Number: IN-MYLANLABS-2024M1081033

PATIENT
  Age: 41 Year
  Sex: Female

DRUGS (3)
  1. HEPARIN [Suspect]
     Active Substance: HEPARIN SODIUM
     Indication: Prosthetic cardiac valve thrombosis
     Dosage: INFUSION
     Route: 065
  2. IRON [Concomitant]
     Active Substance: IRON
     Indication: Anaemia
     Dosage: UNK
     Route: 042
  3. ACENOCOUMAROL [Concomitant]
     Active Substance: ACENOCOUMAROL
     Indication: Prosthetic cardiac valve thrombosis
     Dosage: UNK
     Route: 065

REACTIONS (1)
  - Drug ineffective [Unknown]
